FAERS Safety Report 7279304-3 (Version None)
Quarter: 2011Q1

REPORT INFORMATION
  Report Type: 
  Country: None (occurrence: None)
  Receive Date: 20110207
  Receipt Date: 20110131
  Transmission Date: 20110831
  Serious: Yes (Other)
  Sender: FDA-Public Use
  Company Number: US-RB-005707-10

PATIENT
  Sex: Female

DRUGS (4)
  1. SUBUTEX [Suspect]
     Indication: DRUG DEPENDENCE
     Route: 060
     Dates: start: 20100325
  2. CYMBALTA [Concomitant]
     Indication: DEPRESSION
     Dosage: 30 MG
     Route: 065
  3. PRENATAL VITAMINS [Concomitant]
     Indication: PREGNANCY
     Dosage: ONE DAILY
     Route: 065
     Dates: start: 20100325
  4. SUBOXONE [Suspect]
     Indication: DRUG DEPENDENCE
     Route: 060
     Dates: start: 20080520, end: 20100324

REACTIONS (2)
  - DRUG EXPOSURE DURING PREGNANCY [None]
  - ABORTION INDUCED [None]
